FAERS Safety Report 7817866-5 (Version None)
Quarter: 2011Q4

REPORT INFORMATION
  Report Type: 
  Country: None (occurrence: None)
  Receive Date: 20111017
  Receipt Date: 20111011
  Transmission Date: 20120403
  Serious: Yes (Other)
  Sender: FDA-Public Use
  Company Number: GB-MERCK-1109GBR00134

PATIENT
  Age: 34 Year
  Sex: Male
  Weight: 93 kg

DRUGS (3)
  1. MAXALT [Suspect]
     Route: 048
     Dates: start: 20110714
  2. PROPRANOLOL HYDROCHLORIDE [Concomitant]
     Route: 065
     Dates: start: 20110404, end: 20110725
  3. TOPIRAMATE [Concomitant]
     Route: 065
     Dates: start: 20110919

REACTIONS (6)
  - HYPERHIDROSIS [None]
  - PALPITATIONS [None]
  - FEAR [None]
  - TREMOR [None]
  - DYSPNOEA [None]
  - PANIC ATTACK [None]
